FAERS Safety Report 5901523-6 (Version None)
Quarter: 2008Q3

REPORT INFORMATION
  Report Type: 
  Country: None (occurrence: None)
  Receive Date: 20080929
  Receipt Date: 20080918
  Transmission Date: 20090109
  Serious: Yes (Hospitalization)
  Sender: FDA-Public Use
  Company Number: US-JNJFOC-20080904699

PATIENT
  Sex: Male
  Weight: 99.79 kg

DRUGS (8)
  1. FENTANYL TRANSDERMAL SYSTEM [Suspect]
     Route: 062
  2. FENTANYL TRANSDERMAL SYSTEM [Suspect]
     Indication: NECK PAIN
     Route: 062
  3. FENTANYL TRANSDERMAL SYSTEM [Suspect]
     Indication: NECK PAIN
     Route: 062
  4. ENDOCET [Concomitant]
     Indication: PAIN
     Dosage: 10-325MG
     Route: 048
  5. CARISOPRODOL [Concomitant]
     Indication: MUSCLE RELAXANT THERAPY
     Route: 048
  6. LORAZEPAM [Concomitant]
     Indication: NERVOUSNESS
     Route: 048
  7. LISINOPRIL [Concomitant]
     Indication: BLOOD PRESSURE
     Route: 048
  8. TRAZIDONE [Concomitant]
     Indication: SLEEP DISORDER
     Dosage: TWO 50 MG TABLETS
     Route: 048

REACTIONS (6)
  - DRUG INEFFECTIVE [None]
  - FALL [None]
  - FATIGUE [None]
  - INAPPROPRIATE SCHEDULE OF DRUG ADMINISTRATION [None]
  - NAUSEA [None]
  - NECK PAIN [None]
